FAERS Safety Report 24593729 (Version 3)
Quarter: 2025Q1

REPORT INFORMATION
  Report Type: Spontaneous
  Country: CA (occurrence: CA)
  Receive Date: 20241108
  Receipt Date: 20250106
  Transmission Date: 20250409
  Serious: Yes (Other)
  Sender: PFIZER
  Company Number: CA-PFIZER INC-PV202400144379

PATIENT
  Age: 69 Year
  Sex: Female

DRUGS (6)
  1. RUXIENCE [Suspect]
     Active Substance: RITUXIMAB-PVVR
     Indication: Rheumatoid arthritis
     Route: 042
  2. RUXIENCE [Suspect]
     Active Substance: RITUXIMAB-PVVR
     Route: 042
     Dates: start: 20241104
  3. METFORMIN [Concomitant]
     Active Substance: METFORMIN HYDROCHLORIDE
     Dosage: UNK, 2X/DAY (TWICE A DAY)
  4. METFORMIN [Concomitant]
     Active Substance: METFORMIN HYDROCHLORIDE
     Dosage: UNK, 1X/DAY (ONCE A DAY)
  5. GLYBURIDE [Concomitant]
     Active Substance: GLYBURIDE
     Dosage: 5 MG, 2X/DAY (TWICE A DAY)
     Route: 048
  6. RYBELSUS [Concomitant]
     Active Substance: SEMAGLUTIDE
     Dosage: 7 MG, 1X/DAY (ONCE DAILY)
     Route: 048

REACTIONS (4)
  - Renal impairment [Unknown]
  - Respiratory tract congestion [Recovered/Resolved]
  - Nasopharyngitis [Recovered/Resolved]
  - Off label use [Unknown]

NARRATIVE: CASE EVENT DATE: 20241001
